FAERS Safety Report 4462739-1 (Version None)
Quarter: 2004Q3

REPORT INFORMATION
  Report Type: 
  Country: None (occurrence: None)
  Receive Date: 20040930
  Receipt Date: 20040921
  Transmission Date: 20050211
  Serious: Yes (Hospitalization, Other)
  Sender: FDA-Public Use
  Company Number: US-JNJFOC-20040501989

PATIENT
  Sex: Male

DRUGS (15)
  1. REMICADE [Suspect]
     Route: 042
  2. REMICADE [Suspect]
     Route: 042
  3. REMICADE [Suspect]
     Route: 042
  4. REMICADE [Suspect]
     Route: 042
  5. REMICADE [Suspect]
     Route: 042
  6. REMICADE [Suspect]
     Route: 042
  7. REMICADE [Suspect]
     Route: 042
  8. REMICADE [Suspect]
     Route: 042
  9. REMICADE [Suspect]
     Route: 042
  10. REMICADE [Suspect]
     Route: 042
  11. REMICADE [Suspect]
     Route: 042
  12. REMICADE [Suspect]
     Indication: RHEUMATOID ARTHRITIS
     Route: 042
  13. METHOTREXATE [Concomitant]
     Indication: DRUG USE FOR UNKNOWN INDICATION
  14. FOLIC ACID [Concomitant]
  15. ASPIRIN [Concomitant]

REACTIONS (19)
  - BLOOD MAGNESIUM INCREASED [None]
  - DEAFNESS NEUROSENSORY [None]
  - DEMYELINATION [None]
  - DYSARTHRIA [None]
  - EXOSTOSIS [None]
  - GUILLAIN-BARRE SYNDROME [None]
  - INTERVERTEBRAL DISC DEGENERATION [None]
  - INTERVERTEBRAL DISC PROTRUSION [None]
  - PERONEAL NERVE PALSY [None]
  - PHOTOPHOBIA [None]
  - PNEUMONIA ASPIRATION [None]
  - RASH ERYTHEMATOUS [None]
  - RASH PRURITIC [None]
  - SPINAL COLUMN STENOSIS [None]
  - SPONDYLOSIS [None]
  - URINE KETONE BODY PRESENT [None]
  - VISION BLURRED [None]
  - WEIGHT DECREASED [None]
  - WHITE BLOOD CELLS URINE POSITIVE [None]
